FAERS Safety Report 25044367 (Version 1)
Quarter: 2025Q1

REPORT INFORMATION
  Report Type: Spontaneous
  Country: PL (occurrence: PL)
  Receive Date: 20250306
  Receipt Date: 20250306
  Transmission Date: 20250409
  Serious: Yes (Other)
  Sender: GILEAD
  Company Number: PL-GILEAD-2025-0705593

PATIENT
  Age: 35 Year
  Sex: Female

DRUGS (3)
  1. TRUVADA [Suspect]
     Active Substance: EMTRICITABINE\TENOFOVIR DISOPROXIL FUMARATE
     Indication: HIV infection
     Route: 065
  2. SULFADIAZINE [Suspect]
     Active Substance: SULFADIAZINE
     Indication: Product used for unknown indication
     Route: 065
  3. LOPINAVIR\RITONAVIR [Concomitant]
     Active Substance: LOPINAVIR\RITONAVIR
     Indication: HIV infection

REACTIONS (8)
  - Eye infection toxoplasmal [Unknown]
  - Cerebral toxoplasmosis [Unknown]
  - Retinitis [Unknown]
  - Prerenal failure [Unknown]
  - Bone disorder [Unknown]
  - Dehydration [Not Recovered/Not Resolved]
  - Anaemia [Unknown]
  - Vomiting [Not Recovered/Not Resolved]
